FAERS Safety Report 9927824 (Version 1)
Quarter: 2014Q1

REPORT INFORMATION
  Report Type: Spontaneous
  Country: PH (occurrence: None)
  Receive Date: 20140221
  Receipt Date: 20140221
  Transmission Date: 20141002
  Serious: Yes (Hospitalization)
  Sender: FDA-Public Use
  Company Number: SYM-2014-17399

PATIENT
  Age: 24 Year
  Sex: Female

DRUGS (3)
  1. METRONIDAZOLE [Suspect]
     Indication: EVIDENCE BASED TREATMENT
     Dosage: INTRAVENOUS (NOT OTHERWISE SPECIFIED)
     Route: 042
  2. UNACID [Suspect]
     Indication: EVIDENCE BASED TREATMENT
     Dosage: INTRAVENOUS (NOT OTHERWISE SPECIFIED)
     Route: 042
  3. DRUGS FOR TREATMENT OF TUBERCULOSIS(DRUGS FOR TREATMENT OF TUBERCULOSIS) [Suspect]
     Indication: PULMONARY TUBERCULOSIS

REACTIONS (3)
  - Cholecystitis acute [None]
  - Anaemia [None]
  - Drug reaction with eosinophilia and systemic symptoms [None]
